FAERS Safety Report 12892110 (Version 1)
Quarter: 2016Q4

REPORT INFORMATION
  Report Type: Spontaneous
  Country: US (occurrence: US)
  Receive Date: 20161028
  Receipt Date: 20161028
  Transmission Date: 20170207
  Serious: Yes (Death, Other)
  Sender: FDA-Public Use
  Company Number: US-UNITED THERAPEUTICS-UNT-2016-016518

PATIENT
  Age: 69 Year
  Sex: Female
  Weight: 71.66 kg

DRUGS (1)
  1. REMODULIN [Suspect]
     Active Substance: TREPROSTINIL
     Indication: PULMONARY HYPERTENSION
     Dosage: 0.038 ?G/KG, CONTINUING
     Route: 058
     Dates: start: 20160715

REACTIONS (4)
  - Drug ineffective [Unknown]
  - Pulmonary hypertension [Unknown]
  - Death [Fatal]
  - Urosepsis [Unknown]

NARRATIVE: CASE EVENT DATE: 201610
